FAERS Safety Report 7781370-3 (Version None)
Quarter: 2011Q3

REPORT INFORMATION
  Report Type: 
  Country: None (occurrence: None)
  Receive Date: 20110927
  Receipt Date: 20110922
  Transmission Date: 20111222
  Serious: Yes (Life-Threatening, Hospitalization, Other)
  Sender: FDA-Public Use
  Company Number: CA-PFIZER INC-2011223176

PATIENT
  Age: 16 Year
  Sex: Male

DRUGS (1)
  1. MS CONTIN [Suspect]
     Dosage: 3000 MG, SINGLE
     Route: 048

REACTIONS (2)
  - OVERDOSE [None]
  - PULMONARY HAEMORRHAGE [None]
